FAERS Safety Report 7584112-X (Version None)
Quarter: 2011Q2

REPORT INFORMATION
  Report Type: 
  Country: None (occurrence: None)
  Receive Date: 20110630
  Receipt Date: 20110621
  Transmission Date: 20111010
  Serious: Yes (Other)
  Sender: FDA-Public Use
  Company Number: GB-JNJFOC-20110610051

PATIENT
  Age: 61 Year
  Sex: Male

DRUGS (3)
  1. PREGABALIN [Suspect]
     Indication: EPILEPSY
     Route: 065
  2. TOPIRAMATE [Suspect]
     Indication: EPILEPSY
     Route: 048
  3. PHENYTOIN [Suspect]
     Indication: EPILEPSY
     Route: 065

REACTIONS (2)
  - RETINAL VEIN OCCLUSION [None]
  - BLOOD HOMOCYSTEINE INCREASED [None]
